FAERS Safety Report 17283056 (Version 2)
Quarter: 2020Q1

REPORT INFORMATION
  Report Type: Spontaneous
  Country: US (occurrence: US)
  Receive Date: 20200117
  Receipt Date: 20200221
  Transmission Date: 20200409
  Serious: Yes (Death, Hospitalization, Other)
  Sender: FDA-Public Use
  Company Number: US-PFIZER INC-2020021147

PATIENT
  Sex: Male

DRUGS (4)
  1. PRILOSEC [Suspect]
     Active Substance: OMEPRAZOLE MAGNESIUM
     Dosage: AS DIRECTED
     Route: 048
     Dates: start: 2005
  2. PRILOSEC OTC [Suspect]
     Active Substance: OMEPRAZOLE MAGNESIUM
     Dosage: AS DIRECTED
     Route: 048
     Dates: start: 2005
  3. NEXIUM [Suspect]
     Active Substance: ESOMEPRAZOLE MAGNESIUM
     Dosage: AS DIRECTED
     Route: 048
     Dates: start: 2005
  4. PROTONIX [Suspect]
     Active Substance: PANTOPRAZOLE SODIUM
     Dosage: AS DIRECTED
     Route: 048
     Dates: start: 2005

REACTIONS (2)
  - Chronic kidney disease [Fatal]
  - Acute kidney injury [Fatal]

NARRATIVE: CASE EVENT DATE: 2016
